FAERS Safety Report 7582927-5 (Version None)
Quarter: 2011Q2

REPORT INFORMATION
  Report Type: 
  Country: None (occurrence: None)
  Receive Date: 20110527
  Receipt Date: 20101013
  Transmission Date: 20111010
  Serious: Yes (Other)
  Sender: FDA-Public Use
  Company Number: US201010000040

PATIENT
  Age: 52 Year
  Sex: Female
  Weight: 54 kg

DRUGS (10)
  1. DITROPAN [Concomitant]
  2. METFORMIN HCL [Concomitant]
  3. ATENOLOL [Concomitant]
  4. DIAZIDE (GLICLAZIDE) [Concomitant]
  5. LEXAPRO [Concomitant]
  6. ACTOS [Concomitant]
  7. JANUVIA [Concomitant]
  8. CLONAZEPAM [Concomitant]
  9. BYETTA [Suspect]
     Indication: DIABETES MELLITUS
     Dosage: 5 UG, 2/D
     Dates: end: 20100916
  10. CRESTOR [Concomitant]

REACTIONS (3)
  - DIARRHOEA [None]
  - PANCREATITIS [None]
  - WEIGHT DECREASED [None]
